FAERS Safety Report 19026257 (Version 2)
Quarter: 2021Q1

REPORT INFORMATION
  Report Type: Spontaneous
  Country: GB (occurrence: GB)
  Receive Date: 20210318
  Receipt Date: 20210326
  Transmission Date: 20210420
  Serious: Yes (Other)
  Sender: FDA-Public Use
  Company Number: GB-ALKEM LABORATORIES LIMITED-GB-ALKEM-2021-01313

PATIENT

DRUGS (1)
  1. QUETIAPINE FUMARATE. [Suspect]
     Active Substance: QUETIAPINE FUMARATE
     Indication: MAJOR DEPRESSION
     Dosage: 150 MILLIGRAM
     Route: 048

REACTIONS (5)
  - Adverse drug reaction [Recovering/Resolving]
  - Amnesia [Recovering/Resolving]
  - Anxiety [Unknown]
  - Depression [Recovering/Resolving]
  - Feeling abnormal [Recovering/Resolving]
